FAERS Safety Report 7228823-4 (Version None)
Quarter: 2011Q1

REPORT INFORMATION
  Report Type: 
  Country: None (occurrence: None)
  Receive Date: 20110117
  Receipt Date: 20110103
  Transmission Date: 20110831
  Serious: Yes (Life-Threatening, Hospitalization)
  Sender: FDA-Public Use
  Company Number: DE-RANBAXY-2011R1-40966

PATIENT
  Age: 69 Year
  Sex: Female
  Weight: 90 kg

DRUGS (5)
  1. CEFAZOLIN [Suspect]
     Indication: PROPHYLAXIS
     Dosage: 2 G, UNK
     Route: 042
  2. PATENTBLAU V [Suspect]
     Indication: PRODUCT USED FOR UNKNOWN INDICATION
     Dosage: 2 ML, UNK
     Route: 058
  3. ESMERON [Concomitant]
     Indication: ANAESTHESIA
     Dosage: 30 MG, UNK
     Route: 042
  4. SUFENTANIL [Concomitant]
     Indication: ANAESTHESIA
     Dosage: 40 UG, UNK
     Route: 042
  5. ETOMIDATE LIPURO [Concomitant]
     Indication: ANAESTHESIA
     Dosage: 20 MG, UNK
     Route: 042

REACTIONS (2)
  - ANAPHYLACTIC SHOCK [None]
  - CIRCULATORY COLLAPSE [None]
